FAERS Safety Report 20701322 (Version 3)
Quarter: 2022Q2

REPORT INFORMATION
  Report Type: Spontaneous
  Country: HK (occurrence: HK)
  Receive Date: 20220412
  Receipt Date: 20220510
  Transmission Date: 20220721
  Serious: Yes (Other)
  Sender: FDA-Public Use
  Company Number: HK-PFIZER INC-202200529214

PATIENT
  Age: 73 Year
  Sex: Female

DRUGS (1)
  1. PAXLOVID [Suspect]
     Active Substance: NIRMATRELVIR\RITONAVIR
     Indication: COVID-19 treatment
     Dosage: ONE IN MORNING ONE IN EVENING
     Dates: start: 20220406, end: 20220406

REACTIONS (6)
  - Tongue paralysis [Recovered/Resolved]
  - Dysgeusia [Recovered/Resolved]
  - Throat irritation [Recovered/Resolved]
  - Oesophageal pain [Recovered/Resolved]
  - Ageusia [Recovered/Resolved]
  - Tongue disorder [Recovered/Resolved]

NARRATIVE: CASE EVENT DATE: 20220401
